FAERS Safety Report 14970148 (Version 1)
Quarter: 2018Q2

REPORT INFORMATION
  Report Type: Spontaneous
  Country: US (occurrence: US)
  Receive Date: 20180512
  Receipt Date: 20180512
  Transmission Date: 20180711
  Serious: Yes (Life-Threatening, Disabling, Other)
  Sender: FDA-Public Use
  Company Number: None

PATIENT
  Age: 61 Year
  Sex: Female
  Weight: 80.1 kg

DRUGS (3)
  1. CALCIUM [Concomitant]
     Active Substance: CALCIUM
  2. RISPERIDONE. [Suspect]
     Active Substance: RISPERIDONE
     Indication: MENTAL DISORDER
     Dosage: ?          QUANTITY:1 TABLET(S);?
     Route: 048
     Dates: start: 20010601, end: 20170309
  3. VITAMIN D [Concomitant]
     Active Substance: CHOLECALCIFEROL

REACTIONS (32)
  - Rash [None]
  - Asphyxia [None]
  - Abdominal pain upper [None]
  - Hyperacusis [None]
  - Genital disorder female [None]
  - Breast tenderness [None]
  - Pain [None]
  - Toxicity to various agents [None]
  - Food allergy [None]
  - Glucose tolerance impaired [None]
  - Flatulence [None]
  - Rhabdomyolysis [None]
  - Gait inability [None]
  - Post-traumatic stress disorder [None]
  - Pruritus [None]
  - Tendon rupture [None]
  - Gastrointestinal disorder [None]
  - Breast mass [None]
  - Multiple allergies [None]
  - Extrapyramidal disorder [None]
  - Hypercholesterolaemia [None]
  - Urticaria [None]
  - Constipation [None]
  - Dry skin [None]
  - Anticholinergic syndrome [None]
  - Joint dislocation [None]
  - Diarrhoea [None]
  - Rapid eye movements sleep abnormal [None]
  - Product quality issue [None]
  - Weight increased [None]
  - Gastrooesophageal reflux disease [None]
  - Eructation [None]

NARRATIVE: CASE EVENT DATE: 20130401
